FAERS Safety Report 4317276-1 (Version None)
Quarter: 2004Q1

REPORT INFORMATION
  Report Type: 
  Country: None (occurrence: None)
  Receive Date: 20040312
  Receipt Date: 20040223
  Transmission Date: 20041129
  Serious: Yes (Hospitalization)
  Sender: FDA-Public Use
  Company Number: US066166

PATIENT
  Age: 60 Year
  Sex: Female

DRUGS (7)
  1. ENBREL [Suspect]
     Indication: AUTOIMMUNE DISORDER
     Dosage: 25 MG, 2 IN 1 WEEKS, SC
     Route: 058
     Dates: start: 20030327, end: 20031016
  2. PREDNISONE [Concomitant]
  3. VERAPAMIL HYDROCHLORIDE [Concomitant]
  4. LISINOPRIL [Concomitant]
  5. CALCIUM [Concomitant]
  6. RISEDRONATE SODIUM [Concomitant]
  7. OMEPRAZOLE [Concomitant]

REACTIONS (8)
  - DISEASE RECURRENCE [None]
  - FEMALE GENITAL-DIGESTIVE TRACT FISTULA [None]
  - IMPAIRED HEALING [None]
  - INCISIONAL HERNIA [None]
  - PNEUMONIA [None]
  - POST PROCEDURAL COMPLICATION [None]
  - POSTOPERATIVE INFECTION [None]
  - STAPHYLOCOCCAL INFECTION [None]
